FAERS Safety Report 5734301-1 (Version None)
Quarter: 2008Q2

REPORT INFORMATION
  Report Type: 
  Country: None (occurrence: None)
  Receive Date: 20080512
  Receipt Date: 20080429
  Transmission Date: 20081010
  Serious: Yes (Hospitalization)
  Sender: FDA-Public Use
  Company Number: FR-BAYER-200817817GPV

PATIENT
  Age: 55 Year
  Sex: Male

DRUGS (8)
  1. CIPROFLOXACIN HCL [Interacting]
     Indication: ENDOCARDITIS
     Route: 048
     Dates: start: 20070602, end: 20070612
  2. RIFAMPICIN [Interacting]
     Indication: ENDOCARDITIS
     Dosage: UNIT DOSE: 300 MG
     Route: 048
     Dates: start: 20070430, end: 20070612
  3. TEMERIT [Suspect]
     Indication: CARDIAC FAILURE
     Dosage: UNIT DOSE: 5 MG
     Route: 048
     Dates: start: 20070428, end: 20070603
  4. TEMERIT [Suspect]
     Dosage: UNIT DOSE: 5 MG
     Route: 048
     Dates: end: 20070613
  5. PREVISCAN [Interacting]
     Indication: THROMBOSIS PROPHYLAXIS
     Route: 048
     Dates: end: 20070613
  6. PANTOPRAZOLE SODIUM [Suspect]
     Indication: ABDOMINAL PAIN UPPER
     Dosage: UNIT DOSE: 20 MG
     Route: 048
  7. XYZAL [Suspect]
     Indication: DRUG USE FOR UNKNOWN INDICATION
     Route: 048
     Dates: start: 20070401
  8. ASPIRIN [Suspect]
     Indication: THROMBOSIS PROPHYLAXIS
     Dosage: UNIT DOSE: 75 MG
     Route: 048

REACTIONS (2)
  - PURPURA [None]
  - URTICARIA [None]
